FAERS Safety Report 17723054 (Version 1)
Quarter: 2020Q2

REPORT INFORMATION
  Report Type: Report from Study
  Country: CO (occurrence: CO)
  Receive Date: 20200429
  Receipt Date: 20200429
  Transmission Date: 20200714
  Serious: Yes (Death, Other)
  Sender: FDA-Public Use
  Company Number: NVSC2020CO002941

PATIENT
  Age: 49 Year
  Sex: Female

DRUGS (1)
  1. KISQALI [Suspect]
     Active Substance: RIBOCICLIB
     Indication: BREAST CANCER
     Dosage: 600 MG, QD
     Route: 048

REACTIONS (10)
  - Pruritus [Unknown]
  - Rash [Unknown]
  - Malignant neoplasm progression [Unknown]
  - Breast cancer metastatic [Unknown]
  - Feeling abnormal [Unknown]
  - Vomiting [Unknown]
  - General physical health deterioration [Unknown]
  - Drug intolerance [Unknown]
  - Death [Fatal]
  - Tenderness [Unknown]

NARRATIVE: CASE EVENT DATE: 20200426
